FAERS Safety Report 8988072 (Version 1)
Quarter: 2012Q4

REPORT INFORMATION
  Report Type: 
  Country: DK (occurrence: DK)
  Receive Date: 20121227
  Receipt Date: 20121227
  Transmission Date: 20130627
  Serious: Yes (Other)
  Sender: FDA-Public Use
  Company Number: DK-WATSON-2012-22544

PATIENT
  Age: 88 Year
  Sex: Female

DRUGS (1)
  1. ALENDRONATE [Suspect]
     Indication: OSTEOPOROSIS
     Dosage: 70 mg, 1/week
     Route: 048
     Dates: start: 20070901

REACTIONS (4)
  - Osteonecrosis of jaw [Not Recovered/Not Resolved]
  - Tooth abscess [Unknown]
  - Exposed bone in jaw [Not Recovered/Not Resolved]
  - Oral infection [Not Recovered/Not Resolved]
